FAERS Safety Report 7445496-6 (Version None)
Quarter: 2011Q2

REPORT INFORMATION
  Report Type: 
  Country: None (occurrence: None)
  Receive Date: 20110429
  Receipt Date: 20110426
  Transmission Date: 20111010
  Serious: Yes (Other)
  Sender: FDA-Public Use
  Company Number: GB-PFIZER INC-2011085962

PATIENT
  Age: 38 Year
  Sex: Male

DRUGS (7)
  1. CODEINE PHOSPHATE [Concomitant]
  2. SILDENAFIL [Concomitant]
  3. ACETAMINOPHEN [Concomitant]
  4. NOVORAPID [Concomitant]
  5. INSULIN DETEMIR [Concomitant]
  6. IBUPROFEN [Concomitant]
  7. LYRICA [Suspect]
     Dosage: 200 MG, 3X/DAY
     Dates: start: 20100801

REACTIONS (5)
  - DRUG ABUSE [None]
  - HYPOTENSION [None]
  - HEADACHE [None]
  - HYPOGLYCAEMIA [None]
  - DIZZINESS [None]
